FAERS Safety Report 8858729 (Version 3)
Quarter: 2015Q3

REPORT INFORMATION
  Report Type: Spontaneous
  Country: US (occurrence: US)
  Receive Date: 20121024
  Receipt Date: 20150923
  Transmission Date: 20151125
  Serious: Yes (Hospitalization, Disabling, Other)
  Sender: FDA-Public Use
  Company Number: US-MERCK-1210USA006863

PATIENT
  Sex: Male

DRUGS (1)
  1. PROPECIA [Suspect]
     Active Substance: FINASTERIDE
     Indication: ANDROGENETIC ALOPECIA
     Dosage: 1 MG, QD
     Route: 048
     Dates: start: 2000, end: 2012

REACTIONS (28)
  - Depression [Not Recovered/Not Resolved]
  - Ejaculation failure [Not Recovered/Not Resolved]
  - Pulmonary fibrosis [Unknown]
  - Intentional overdose [Unknown]
  - Sexual dysfunction [Not Recovered/Not Resolved]
  - Erectile dysfunction [Not Recovered/Not Resolved]
  - Jugular vein thrombosis [Unknown]
  - Atelectasis [Unknown]
  - Suicide attempt [Unknown]
  - Panic attack [Not Recovered/Not Resolved]
  - Lymphadenectomy [Unknown]
  - Bronchoscopy [Unknown]
  - Lung consolidation [Unknown]
  - Intentional self-injury [Unknown]
  - Depression [Unknown]
  - Cognitive disorder [Not Recovered/Not Resolved]
  - Ejaculation disorder [Not Recovered/Not Resolved]
  - Subclavian vein thrombosis [Recovered/Resolved]
  - Pollakiuria [Unknown]
  - Painful ejaculation [Unknown]
  - Anxiety [Not Recovered/Not Resolved]
  - Hodgkin^s disease [Unknown]
  - Sensory loss [Unknown]
  - Chest pain [Unknown]
  - Loss of libido [Not Recovered/Not Resolved]
  - Dysthymic disorder [Unknown]
  - Lymphadenopathy [Unknown]
  - Inflammation [Unknown]

NARRATIVE: CASE EVENT DATE: 200012
